FAERS Safety Report 22739225 (Version 4)
Quarter: 2024Q1

REPORT INFORMATION
  Report Type: Spontaneous
  Country: US (occurrence: US)
  Receive Date: 20230722
  Receipt Date: 20240212
  Transmission Date: 20240410
  Serious: Yes (Other)
  Sender: FDA-Public Use
  Company Number: US-GLENMARK PHARMACEUTICALS-2023GMK083440

PATIENT

DRUGS (1)
  1. RYALTRIS [Suspect]
     Active Substance: MOMETASONE FUROATE MONOHYDRATE\OLOPATADINE HYDROCHLORIDE
     Indication: Product used for unknown indication
     Dosage: 2 DOSAGE FORM, BID
     Route: 045
     Dates: start: 202303

REACTIONS (6)
  - Condition aggravated [Unknown]
  - Cough [Unknown]
  - Product storage error [Unknown]
  - Manufacturing product shipping issue [Unknown]
  - Liquid product physical issue [Unknown]
  - Product quality issue [Unknown]
